FAERS Safety Report 8470753-4 (Version None)
Quarter: 2012Q2

REPORT INFORMATION
  Report Type: 
  Country: None (occurrence: None)
  Receive Date: 20120627
  Receipt Date: 20120619
  Transmission Date: 20120825
  Serious: Yes (Hospitalization)
  Sender: FDA-Public Use
  Company Number: US-BAYER-2012-053302

PATIENT
  Age: 36 Year
  Sex: Female
  Weight: 131.7 kg

DRUGS (6)
  1. ZITHROMAX [Concomitant]
  2. GLUCOPHAGE [Concomitant]
     Indication: POLYCYSTIC OVARIES
     Dosage: 1 TABLET DAILY
     Dates: start: 20010613, end: 20050130
  3. YASMIN [Suspect]
     Indication: POLYCYSTIC OVARIES
     Dosage: UNK
     Dates: start: 20020703, end: 20030130
  4. CONCERTA [Concomitant]
     Indication: ATTENTION DEFICIT/HYPERACTIVITY DISORDER
     Dosage: 1 TABLET, BID
     Dates: start: 20020202, end: 20090101
  5. PROPRANOLOL [Concomitant]
     Dosage: 20 MG, UNK
  6. CHERATUSSIN AC [Concomitant]

REACTIONS (5)
  - INJURY [None]
  - PAIN [None]
  - DYSPNOEA [None]
  - PAIN IN EXTREMITY [None]
  - DEEP VEIN THROMBOSIS [None]
